FAERS Safety Report 14073479 (Version 3)
Quarter: 2018Q2

REPORT INFORMATION
  Report Type: Report from Study
  Country: JP (occurrence: JP)
  Receive Date: 20171011
  Receipt Date: 20180409
  Transmission Date: 20180711
  Serious: Yes (Death, Hospitalization)
  Sender: FDA-Public Use
  Company Number: JP-TAIHO ONCOLOGY INC-JPTT171237

PATIENT
  Age: 63 Year
  Sex: Male
  Weight: 46 kg

DRUGS (4)
  1. LONSURF [Suspect]
     Active Substance: TIPIRACIL HYDROCHLORIDE\TRIFLURIDINE
     Indication: RECTAL CANCER METASTATIC
     Dosage: 50 MG X 2/DAY, ON DAY 1 EVENING-DAY 6 MORNING AND DAY 8 MORNING-DAY 9 EVENING OF EACH 28-DAY CYCLE,
     Route: 048
     Dates: start: 20160530, end: 20160607
  2. LONSURF [Suspect]
     Active Substance: TIPIRACIL HYDROCHLORIDE\TRIFLURIDINE
     Indication: RECTAL CANCER METASTATIC
     Dosage: 40 MG X 2/DAY, ON DAY 1 EVENING-DAY 6 MORNING AND DAY 8 EVENING-DAY 13 MORNING OF EACH 28-DAY CYCLE,
     Route: 048
     Dates: start: 20160829, end: 20160910
  3. LONSURF [Suspect]
     Active Substance: TIPIRACIL HYDROCHLORIDE\TRIFLURIDINE
     Indication: RECTAL CANCER METASTATIC
     Dosage: 50 MG X 2/DAY, ON DAY 1 EVENING-DAY 6 MORNING AND DAY 8 EVENING-DAY 13 MORNING OF EACH 28-DAY CYCLE,
     Route: 048
     Dates: start: 20160627, end: 20160709
  4. LONSURF [Suspect]
     Active Substance: TIPIRACIL HYDROCHLORIDE\TRIFLURIDINE
     Indication: RECTAL CANCER METASTATIC
     Dosage: 50 MG X 2/DAY, ON DAY 1 EVENING-DAY 6 MORNING AND DAY 8 EVENING-DAY 13 MORNING OF EACH 28-DAY CYCLE,
     Route: 048
     Dates: start: 20160725, end: 20160806

REACTIONS (6)
  - Anaemia [Fatal]
  - Neutrophil count decreased [Fatal]
  - Nausea [Recovered/Resolved]
  - White blood cell count decreased [Fatal]
  - Platelet count decreased [Fatal]
  - Rectal cancer metastatic [Fatal]

NARRATIVE: CASE EVENT DATE: 20160606
